FAERS Safety Report 9241760 (Version 2)
Quarter: 2013Q2

REPORT INFORMATION
  Report Type: Spontaneous
  Country: US (occurrence: US)
  Receive Date: 20130419
  Receipt Date: 20130520
  Transmission Date: 20140414
  Serious: Yes (Other)
  Sender: FDA-Public Use
  Company Number: US-JNJFOC-20130403645

PATIENT
  Age: 85 Year
  Sex: Female

DRUGS (1)
  1. DURAGESIC [Suspect]
     Indication: PAIN
     Dosage: NDC: 5045809005
     Route: 062
     Dates: start: 20130403

REACTIONS (7)
  - Body height decreased [Not Recovered/Not Resolved]
  - Arthritis [Unknown]
  - Product quality issue [Unknown]
  - Feeling abnormal [Not Recovered/Not Resolved]
  - Drug ineffective [Not Recovered/Not Resolved]
  - Drug administered at inappropriate site [Recovered/Resolved]
  - Therapy cessation [Not Recovered/Not Resolved]
